FAERS Safety Report 19290041 (Version 1)
Quarter: 2021Q2

REPORT INFORMATION
  Report Type: Spontaneous
  Country: DE (occurrence: DE)
  Receive Date: 20210522
  Receipt Date: 20210522
  Transmission Date: 20210717
  Serious: Yes (Hospitalization, Other)
  Sender: FDA-Public Use
  Company Number: NVSC2021DE112367

PATIENT
  Age: 80 Year
  Sex: Female

DRUGS (1)
  1. METOHEXAL SUCC 47,5 MG RETARDTABLETTEN [Suspect]
     Active Substance: METOPROLOL SUCCINATE
     Indication: HYPERTENSION
     Dosage: UNK, BID (2 X DAILY / 1?0?1)
     Route: 065
     Dates: start: 2015

REACTIONS (17)
  - Arthralgia [Unknown]
  - Muscle spasms [Unknown]
  - Fatigue [Unknown]
  - Night sweats [Unknown]
  - Visual impairment [Unknown]
  - Alopecia [Unknown]
  - Inappropriate schedule of product administration [Unknown]
  - Vertigo [Unknown]
  - Memory impairment [Unknown]
  - Hyperhidrosis [Unknown]
  - Dizziness [Unknown]
  - Peripheral coldness [Unknown]
  - Muscle tightness [Unknown]
  - Cerebrovascular accident [Unknown]
  - Blood pressure increased [Unknown]
  - Dyspnoea [Unknown]
  - Hallucination [Unknown]

NARRATIVE: CASE EVENT DATE: 2015
